FAERS Safety Report 5776959-7 (Version None)
Quarter: 2008Q2

REPORT INFORMATION
  Report Type: 
  Country: None (occurrence: None)
  Receive Date: 20080618
  Receipt Date: 20080606
  Transmission Date: 20081010
  Serious: Yes (Hospitalization)
  Sender: FDA-Public Use
  Company Number: FR-JNJFOC-20080601879

PATIENT
  Age: 91 Year
  Sex: Female

DRUGS (4)
  1. OFLOCET [Suspect]
     Indication: LUNG INFECTION
     Route: 048
  2. AUGMENTIN '125' [Suspect]
     Indication: LUNG INFECTION
     Route: 042
  3. HYPERIUM [Concomitant]
     Route: 048
  4. FENOFIBRATE [Concomitant]
     Route: 048

REACTIONS (4)
  - ANAEMIA [None]
  - LEUKOPENIA [None]
  - LYMPHOCYTE COUNT DECREASED [None]
  - NEUTROPENIA [None]
